FAERS Safety Report 9065394 (Version 1)
Quarter: 2013Q1

REPORT INFORMATION
  Report Type: Report from Study
  Country: US (occurrence: US)
  Receive Date: 20130131
  Receipt Date: 20130131
  Transmission Date: 20140127
  Serious: No
  Sender: FDA-Public Use
  Company Number: US-ABBOTT-12P-163-1015470-00

PATIENT
  Age: 60 Year
  Sex: Male

DRUGS (8)
  1. HUMIRA [Suspect]
     Indication: RHEUMATOID ARTHRITIS
     Dates: start: 2008
  2. LISINOPRIL [Concomitant]
     Indication: BLOOD PRESSURE
  3. OMEPRAZOLE [Concomitant]
     Indication: DYSPEPSIA
  4. VIT D [Concomitant]
     Indication: PRODUCT USED FOR UNKNOWN INDICATION
  5. MULTIVITAMINS [Concomitant]
     Indication: PRODUCT USED FOR UNKNOWN INDICATION
     Dosage: ONCE DAILY
  6. ASPIRIN [Concomitant]
     Indication: PROPHYLAXIS
  7. LAXATIVES [Concomitant]
     Indication: BOWEL MOVEMENT IRREGULARITY
  8. SIMVASTATIN [Concomitant]
     Indication: BLOOD CHOLESTEROL

REACTIONS (4)
  - Weight decreased [Unknown]
  - Injection site pain [Unknown]
  - Injection site extravasation [Unknown]
  - Incorrect dose administered by device [Unknown]
